FAERS Safety Report 13089985 (Version 1)
Quarter: 2017Q1

REPORT INFORMATION
  Report Type: Spontaneous
  Country: US (occurrence: US)
  Receive Date: 20170105
  Receipt Date: 20170105
  Transmission Date: 20170428
  Serious: No
  Sender: FDA-Public Use
  Company Number: US-TOLMAR, INC.-2015US011472

PATIENT
  Age: 6 Year
  Sex: Female

DRUGS (1)
  1. ELIGARD [Suspect]
     Active Substance: LEUPROLIDE ACETATE
     Indication: PRODUCT USED FOR UNKNOWN INDICATION
     Dosage: 0.55 MG, UNK
     Route: 058

REACTIONS (2)
  - Accidental exposure to product by child [Unknown]
  - Off label use [Unknown]

NARRATIVE: CASE EVENT DATE: 20151223
